FAERS Safety Report 18732219 (Version 2)
Quarter: 2021Q1

REPORT INFORMATION
  Report Type: Report from Study
  Country: BR (occurrence: BR)
  Receive Date: 20210113
  Receipt Date: 20210121
  Transmission Date: 20210419
  Serious: Yes (Other)
  Sender: FDA-Public Use
  Company Number: BR-UCBSA-2021000646

PATIENT
  Age: 61 Year
  Sex: Female
  Weight: 67 kg

DRUGS (5)
  1. PRELONE [Concomitant]
     Active Substance: PREDNISOLONE
     Indication: ARTHRITIS
     Dosage: 5 MILLIGRAM, ONCE DAILY (QD)
     Route: 048
     Dates: start: 2018
  2. AZITROMICIN [Concomitant]
     Active Substance: AZITHROMYCIN
     Indication: SINUSITIS
     Dosage: UNK
     Route: 048
     Dates: start: 20201203, end: 20201208
  3. ATENOLOL. [Concomitant]
     Active Substance: ATENOLOL
     Indication: ARRHYTHMIA
     Dosage: ONE IN THE MORNING AND ONE IN THE EVENING
     Route: 048
     Dates: start: 2010
  4. CERTOLIZUMAB PEGOL RA [Suspect]
     Active Substance: CERTOLIZUMAB PEGOL
     Indication: RHEUMATOID ARTHRITIS
     Dosage: UNK, MONTHLY (QM)
     Route: 058
     Dates: start: 201808
  5. LOSARTAN. [Concomitant]
     Active Substance: LOSARTAN
     Indication: ARRHYTHMIA
     Dosage: UNK
     Route: 048
     Dates: start: 2010

REACTIONS (2)
  - COVID-19 [Recovered/Resolved]
  - Sinusitis [Not Recovered/Not Resolved]

NARRATIVE: CASE EVENT DATE: 20201203
